FAERS Safety Report 13079445 (Version 1)
Quarter: 2017Q1

REPORT INFORMATION
  Report Type: Report from Study
  Country: US (occurrence: US)
  Receive Date: 20170103
  Receipt Date: 20170103
  Transmission Date: 20170428
  Serious: Yes (Death, Other)
  Sender: FDA-Public Use
  Company Number: US-ROCHE-1874318

PATIENT

DRUGS (2)
  1. BEVACIZUMAB [Suspect]
     Active Substance: BEVACIZUMAB
     Indication: HEPATOCELLULAR CARCINOMA
     Route: 042
  2. SORAFENIB [Suspect]
     Active Substance: SORAFENIB
     Indication: HEPATOCELLULAR CARCINOMA
     Dosage: FOR 5 CONSECUTIVE DAYS OUT OF EACH 7 DAYS
     Route: 048

REACTIONS (5)
  - Blood creatinine increased [Unknown]
  - Sudden death [Fatal]
  - Syncope [Unknown]
  - Hypoglycaemia [Unknown]
  - Acidosis [Unknown]
